FAERS Safety Report 7251881-8 (Version None)
Quarter: 2011Q1

REPORT INFORMATION
  Report Type: 
  Country: None (occurrence: None)
  Receive Date: 20110128
  Receipt Date: 20100111
  Transmission Date: 20110831
  Serious: No
  Sender: FDA-Public Use
  Company Number: US-ABBOTT-10P-163-0618446-00

PATIENT
  Sex: Female
  Weight: 68.1 kg

DRUGS (3)
  1. HUMIRA [Suspect]
     Indication: PSORIASIS
     Route: 058
     Dates: start: 20100106
  2. METHOTREXATE [Concomitant]
     Indication: PSORIASIS
     Dates: start: 20100105
  3. HUMIRA [Suspect]
     Route: 058
     Dates: end: 20100106

REACTIONS (8)
  - DRUG INEFFECTIVE [None]
  - COUGH [None]
  - INJECTION SITE PAIN [None]
  - MUSCULOSKELETAL CHEST PAIN [None]
  - ERYTHEMA [None]
  - SKIN EXFOLIATION [None]
  - NASOPHARYNGITIS [None]
  - PSORIASIS [None]
